FAERS Safety Report 17845416 (Version 2)
Quarter: 2020Q2

REPORT INFORMATION
  Report Type: Spontaneous
  Country: US (occurrence: US)
  Receive Date: 20200601
  Receipt Date: 20200617
  Transmission Date: 20200714
  Serious: No
  Sender: FDA-Public Use
  Company Number: US-BAYER-2020-100664

PATIENT
  Age: 50 Year
  Sex: Female

DRUGS (2)
  1. CLARITIN [Suspect]
     Active Substance: LORATADINE
     Dosage: 1 DF
     Route: 048
     Dates: start: 1992, end: 1996
  2. CLARITIN [Suspect]
     Active Substance: LORATADINE

REACTIONS (4)
  - Migraine [Recovered/Resolved]
  - Migraine [Recovered/Resolved]
  - Headache [None]
  - Eye swelling [Recovered/Resolved]

NARRATIVE: CASE EVENT DATE: 201907
